FAERS Safety Report 9076056 (Version 1)
Quarter: 2013Q1

REPORT INFORMATION
  Report Type: Spontaneous
  Country: US (occurrence: US)
  Receive Date: 20130129
  Receipt Date: 20130129
  Transmission Date: 20140127
  Serious: Yes (Death)
  Sender: FDA-Public Use
  Company Number: CHPA2013US001702

PATIENT
  Age: 66 Year
  Sex: Male

DRUGS (2)
  1. MAALOX UNKNOWN [Suspect]
     Indication: PAIN
     Dosage: 6 TSP, BEFORE EACH MEAL
     Route: 048
  2. METFORMIN [Concomitant]
     Indication: DIABETES MELLITUS
     Dosage: 500 MG, BID

REACTIONS (2)
  - Lung neoplasm malignant [Fatal]
  - Off label use [Unknown]
